FAERS Safety Report 9166770 (Version 1)
Quarter: 2012Q4

REPORT INFORMATION
  Report Type: 
  Country: US (occurrence: US)
  Receive Date: 20121123
  Receipt Date: 20121123
  Transmission Date: 20130627
  Serious: Yes (Other)
  Sender: FDA-Public Use
  Company Number: US-RB-046658-12

PATIENT
  Sex: Female

DRUGS (4)
  1. MUCINEX FAST-MAX SEVERE CONGESTION AND COLD [Suspect]
  2. MUCINEX FAST-MAX SEVERE CONGESTION AND COLD [Suspect]
  3. MUCINEX FAST-MAX SEVERE CONGESTION AND COLD [Suspect]
     Dosage: on 05-NOV-2012 , 2 tabs every 4 hrs approx.
     Route: 048
     Dates: start: 20121105
  4. MUCINEX FAST-MAX SEVERE CONGESTION AND COLD [Suspect]

REACTIONS (1)
  - Blindness transient [Recovered/Resolved]
